FAERS Safety Report 4633114-1 (Version None)
Quarter: 2005Q2

REPORT INFORMATION
  Report Type: 
  Country: None (occurrence: None)
  Receive Date: 20050412
  Receipt Date: 20050408
  Transmission Date: 20051028
  Serious: Yes (Hospitalization)
  Sender: FDA-Public Use
  Company Number: US-GLAXOSMITHKLINE-A0553392A

PATIENT
  Age: 35 Year
  Sex: Female

DRUGS (2)
  1. VENTOLIN HFA [Suspect]
     Indication: ASTHMA
     Route: 055
     Dates: start: 20050101
  2. COCAINE [Concomitant]

REACTIONS (2)
  - DRUG ABUSER [None]
  - LOSS OF CONSCIOUSNESS [None]
